FAERS Safety Report 9357823 (Version 1)
Quarter: 2013Q2

REPORT INFORMATION
  Report Type: Report from Study
  Country: CO (occurrence: CO)
  Receive Date: 20130620
  Receipt Date: 20130620
  Transmission Date: 20140414
  Serious: Yes (Death)
  Sender: FDA-Public Use
  Company Number: CO-SANOFI-AVENTIS-2013SA061350

PATIENT
  Age: 58 Year
  Sex: Female

DRUGS (7)
  1. LANTUS [Suspect]
     Indication: DIABETES MELLITUS
     Route: 058
     Dates: start: 201302, end: 20130512
  2. METOPROLOL [Suspect]
     Indication: PRODUCT USED FOR UNKNOWN INDICATION
     Route: 048
     Dates: end: 20130512
  3. NIFEDIPINE [Suspect]
     Indication: PRODUCT USED FOR UNKNOWN INDICATION
     Route: 048
     Dates: end: 20130512
  4. ENALAPRIL [Suspect]
     Indication: PRODUCT USED FOR UNKNOWN INDICATION
     Route: 048
     Dates: end: 20130512
  5. CALCIUM [Concomitant]
     Route: 048
     Dates: end: 20130512
  6. LEVOTHYROXINE [Concomitant]
     Route: 048
     Dates: end: 20130512
  7. ACETYLSALICYLIC ACID [Concomitant]
     Route: 048
     Dates: end: 20130512

REACTIONS (1)
  - Acute myocardial infarction [Fatal]
